FAERS Safety Report 9184370 (Version 2)
Quarter: 2013Q2

REPORT INFORMATION
  Report Type: Spontaneous
  Country: US (occurrence: US)
  Receive Date: 20121031
  Receipt Date: 20130626
  Transmission Date: 20140414
  Serious: Yes (Other)
  Sender: FDA-Public Use
  Company Number: US-UCBSA-069814

PATIENT
  Age: 49 Year
  Sex: Female

DRUGS (3)
  1. CIMZIA [Suspect]
     Indication: CROHN^S DISEASE
     Route: 058
     Dates: start: 2012, end: 201210
  2. CIMZIA [Suspect]
     Indication: CROHN^S DISEASE
     Dosage: RE-STARTED
     Route: 058
  3. MULTIVITAMIN [Concomitant]

REACTIONS (2)
  - Herpes zoster [Recovered/Resolved]
  - Treatment noncompliance [Unknown]
